FAERS Safety Report 9333101 (Version 1)
Quarter: 2013Q2

REPORT INFORMATION
  Report Type: Report from Study
  Country: US (occurrence: US)
  Receive Date: 20130606
  Receipt Date: 20130606
  Transmission Date: 20140414
  Serious: Yes (Hospitalization)
  Sender: FDA-Public Use
  Company Number: US-DYAX CORP.-2013DX000103

PATIENT
  Age: 23 Year
  Sex: Female
  Weight: 68.1 kg

DRUGS (7)
  1. KALBITOR [Suspect]
     Indication: HEREDITARY ANGIOEDEMA
     Route: 058
     Dates: start: 20130520, end: 20130520
  2. KALBITOR [Suspect]
     Route: 058
     Dates: start: 20130520, end: 20130520
  3. KALBITOR [Suspect]
     Route: 058
     Dates: start: 201210
  4. CINRYZE [Concomitant]
     Indication: HEREDITARY ANGIOEDEMA
     Route: 042
     Dates: start: 201210
  5. NUVARING [Concomitant]
     Indication: CONTRACEPTION
     Route: 067
     Dates: start: 200801
  6. NAPROXEN [Concomitant]
     Indication: MYALGIA
     Dates: start: 201305
  7. NAPROXEN [Concomitant]
     Indication: ARTHRALGIA

REACTIONS (9)
  - Anaphylactic reaction [Unknown]
  - Hereditary angioedema [Unknown]
  - Abdominal distension [Unknown]
  - Arthralgia [Unknown]
  - Myalgia [Unknown]
  - Injection site urticaria [Unknown]
  - Nasopharyngitis [Unknown]
  - Fatigue [Unknown]
  - Wrong technique in drug usage process [Unknown]
